FAERS Safety Report 9377982 (Version 1)
Quarter: 2013Q3

REPORT INFORMATION
  Report Type: Spontaneous
  Country: CA (occurrence: CA)
  Receive Date: 20130701
  Receipt Date: 20130701
  Transmission Date: 20140515
  Serious: Yes (Other)
  Sender: FDA-Public Use
  Company Number: CA-BAYER-2013-079819

PATIENT
  Age: 39 Year
  Sex: Female

DRUGS (1)
  1. STAXYN [Suspect]

REACTIONS (1)
  - Victim of sexual abuse [None]
